FAERS Safety Report 5502925-2 (Version None)
Quarter: 2007Q4

REPORT INFORMATION
  Report Type: 
  Country: None (occurrence: None)
  Receive Date: 20071031
  Receipt Date: 20071026
  Transmission Date: 20080405
  Serious: Yes (Other)
  Sender: FDA-Public Use
  Company Number: B0359739A

PATIENT
  Sex: Male

DRUGS (1)
  1. SEROXAT [Suspect]
     Indication: DEPRESSION
     Dosage: 20MG UNKNOWN
     Route: 065
     Dates: start: 19990101

REACTIONS (6)
  - AGGRESSION [None]
  - ANGER [None]
  - DRUG WITHDRAWAL SYNDROME [None]
  - INJURY [None]
  - LACERATION [None]
  - PARANOIA [None]
